FAERS Safety Report 6355863-X (Version None)
Quarter: 2009Q3

REPORT INFORMATION
  Report Type: 
  Country: None (occurrence: None)
  Receive Date: 20090910
  Receipt Date: 20090910
  Transmission Date: 20100115
  Serious: Yes (Hospitalization)
  Sender: FDA-Public Use
  Company Number: None

PATIENT
  Age: 75 Year
  Sex: Male

DRUGS (2)
  1. FLUOXETINE [Suspect]
     Indication: DEPRESSION
     Dosage: MG ONCE PO
     Route: 048
     Dates: start: 20090908, end: 20090908
  2. TERAZOSIN HCL [Suspect]
     Indication: URINARY RETENTION
     Dosage: MG ONCE PO
     Route: 048
     Dates: start: 20090908, end: 20090908

REACTIONS (6)
  - ALCOHOL USE [None]
  - ATRIAL FIBRILLATION [None]
  - CHEST PAIN [None]
  - DEPRESSION [None]
  - MULTIPLE DRUG OVERDOSE [None]
  - URINARY RETENTION [None]
